FAERS Safety Report 8131846-4 (Version None)
Quarter: 2012Q1

REPORT INFORMATION
  Report Type: 
  Country: None (occurrence: None)
  Receive Date: 20120213
  Receipt Date: 20120209
  Transmission Date: 20120608
  Serious: Yes (Death, Hospitalization)
  Sender: FDA-Public Use
  Company Number: IE-PFIZER INC-2012036435

PATIENT
  Age: 43 Year
  Sex: Male

DRUGS (6)
  1. LIPITOR [Suspect]
     Indication: BLOOD CHOLESTEROL INCREASED
     Dosage: 40 MG, UNK
     Route: 048
     Dates: end: 20111104
  2. ASACOLON [Concomitant]
     Indication: COLITIS ULCERATIVE
     Dosage: UNK
     Route: 048
     Dates: start: 20110701
  3. FLUCLOXACILLIN [Suspect]
     Dosage: 1-2G, FOUR TIMES DAILY
     Route: 042
     Dates: start: 20111104, end: 20111108
  4. ESOMEPRAZOLE [Suspect]
     Indication: VASODILATATION
     Dosage: 20 MG, UNK
     Route: 048
     Dates: end: 20111107
  5. FLUCLOXACILLIN [Suspect]
     Indication: SEPSIS
     Dosage: 1-2 G, FOUR TIMES DAILY
     Route: 042
     Dates: start: 20111019, end: 20111101
  6. URSO FALK [Concomitant]
     Indication: LIVER DISORDER
     Dosage: UNK
     Route: 048
     Dates: start: 20110701

REACTIONS (3)
  - GASTROINTESTINAL HAEMORRHAGE [None]
  - RENAL IMPAIRMENT [None]
  - RHABDOMYOLYSIS [None]
